FAERS Safety Report 20437099 (Version 1)
Quarter: 2022Q1

REPORT INFORMATION
  Report Type: Spontaneous
  Country: US (occurrence: None)
  Receive Date: 20220205
  Receipt Date: 20220205
  Transmission Date: 20220423
  Serious: Yes (Life-Threatening, Hospitalization)
  Sender: FDA-Public Use
  Company Number: None

PATIENT
  Age: 52 Year
  Sex: Female
  Weight: 67.5 kg

DRUGS (12)
  1. REGEN-COV [Suspect]
     Active Substance: CASIRIVIMAB\IMDEVIMAB
     Indication: COVID-19
     Route: 042
  2. SPIRONOLACTONE [Concomitant]
  3. BUPROPION XL [Concomitant]
  4. BIHRT [Concomitant]
  5. MULTI VITAMIN [Concomitant]
  6. D3 [Concomitant]
  7. B12 [Concomitant]
  8. FISH OIL [Concomitant]
  9. CALCIUM [Concomitant]
  10. MAGNESIUM [Concomitant]
     Active Substance: MAGNESIUM
  11. DIGESTIVE ENZYMES [Concomitant]
  12. PRE + PROBIOTICS [Concomitant]

REACTIONS (10)
  - Dysstasia [None]
  - Gait disturbance [None]
  - Dyspnoea [None]
  - Pyrexia [None]
  - Heart rate increased [None]
  - Oxygen saturation decreased [None]
  - Fatigue [None]
  - Tremor [None]
  - Tremor [None]
  - Dizziness [None]

NARRATIVE: CASE EVENT DATE: 20211202
